FAERS Safety Report 21724562 (Version 1)
Quarter: 2022Q4

REPORT INFORMATION
  Report Type: Report from Study
  Country: US (occurrence: US)
  Receive Date: 20221213
  Receipt Date: 20221213
  Transmission Date: 20230113
  Serious: Yes (Other)
  Sender: FDA-Public Use
  Company Number: US-SUN PHARMACEUTICAL INDUSTRIES LTD-2022R1-368112

PATIENT
  Sex: Female

DRUGS (2)
  1. DEXAMETHASONE [Suspect]
     Active Substance: DEXAMETHASONE
     Indication: Premedication
     Dosage: 12 MILLIGRAM
     Route: 048
  2. PACLITAXEL [Suspect]
     Active Substance: PACLITAXEL
     Indication: Breast cancer
     Dosage: 175 MILLIGRAM/SQ. METER ONCE EVERY 2 WEEKS FOR FOUR CYCLES
     Route: 042

REACTIONS (6)
  - Hypersensitivity [Unknown]
  - Abdominal pain [Unknown]
  - Back pain [Unknown]
  - Chest pain [Unknown]
  - Flushing [Unknown]
  - Therapy partial responder [Unknown]
